FAERS Safety Report 6666987-1 (Version None)
Quarter: 2010Q2

REPORT INFORMATION
  Report Type: 
  Country: None (occurrence: None)
  Receive Date: 20100405
  Receipt Date: 20100324
  Transmission Date: 20101027
  Serious: Yes (Disabling)
  Sender: FDA-Public Use
  Company Number: TR-BAYER-201020574GPV

PATIENT
  Age: 30 Year
  Sex: Male
  Weight: 76 kg

DRUGS (2)
  1. BETAFERON [Suspect]
     Indication: MULTIPLE SCLEROSIS
     Route: 058
     Dates: start: 20100215
  2. MINOSET PLUS [Concomitant]
     Route: 048
     Dates: start: 20100315

REACTIONS (2)
  - DYSSTASIA [None]
  - GAIT DISTURBANCE [None]
